FAERS Safety Report 9236706 (Version 2)
Quarter: 2013Q2

REPORT INFORMATION
  Report Type: Spontaneous
  Country: US (occurrence: US)
  Receive Date: 20130417
  Receipt Date: 20130625
  Transmission Date: 20140414
  Serious: Yes (Hospitalization)
  Sender: FDA-Public Use
  Company Number: US-GLAXOSMITHKLINE-A1020109A

PATIENT
  Sex: Female

DRUGS (1)
  1. LOVAZA [Suspect]
     Indication: PRODUCT USED FOR UNKNOWN INDICATION
     Dosage: 1G TWICE PER DAY
     Route: 065
     Dates: start: 20120910

REACTIONS (3)
  - Crohn^s disease [Unknown]
  - Surgery [Unknown]
  - Drug administration error [Unknown]
